FAERS Safety Report 17564395 (Version 1)
Quarter: 2020Q1

REPORT INFORMATION
  Report Type: Spontaneous
  Country: JP (occurrence: JP)
  Receive Date: 20200320
  Receipt Date: 20200320
  Transmission Date: 20200409
  Serious: Yes (Other)
  Sender: FDA-Public Use
  Company Number: JP-CELLTRION INC.-2020JP020709

PATIENT

DRUGS (2)
  1. INFLIXIMAB BS FOR I.V. INFUSION100 MG [NK] [Suspect]
     Active Substance: INFLIXIMAB
     Indication: CROHN^S DISEASE
     Dosage: ADMINISTERED UNTIL 27 WEEKS OF GESTATION
  2. 5-AMINOSALICYLIC ACID [Concomitant]
     Active Substance: MESALAMINE
     Dosage: ADMINISTERED UNTIL 27 WEEKS OF GESTATION

REACTIONS (3)
  - Foetal growth restriction [Unknown]
  - Foetal heart rate decreased [Unknown]
  - Foetal exposure during pregnancy [Unknown]
